FAERS Safety Report 21692271 (Version 1)
Quarter: 2022Q4

REPORT INFORMATION
  Report Type: Spontaneous
  Country: CN (occurrence: CN)
  Receive Date: 20221207
  Receipt Date: 20221207
  Transmission Date: 20230113
  Serious: Yes (Hospitalization, Other)
  Sender: FDA-Public Use
  Company Number: CN-INGENUS PHARMACEUTICALS, LLC-2022INF000082

PATIENT
  Age: 64 Year
  Sex: Female

DRUGS (3)
  1. ZOLEDRONIC ACID [Suspect]
     Active Substance: ZOLEDRONIC ACID
     Indication: Metastases to bone
     Dosage: UNK
     Route: 065
  2. ICOTINIB [Suspect]
     Active Substance: ICOTINIB
     Indication: Lung adenocarcinoma
     Dosage: UNK
     Route: 065
  3. GLIMEPIRIDE [Concomitant]
     Active Substance: GLIMEPIRIDE
     Indication: Type 2 diabetes mellitus
     Dosage: UNK
     Route: 065

REACTIONS (5)
  - Nephrolithiasis [Unknown]
  - Fanconi syndrome [Recovering/Resolving]
  - Renal tubular acidosis [Recovering/Resolving]
  - Renal necrosis [Recovering/Resolving]
  - Hypophosphataemia [Recovering/Resolving]
